FAERS Safety Report 9061335 (Version 2)
Quarter: 2013Q1

REPORT INFORMATION
  Report Type: Report from Study
  Country: FR (occurrence: FR)
  Receive Date: 20130204
  Receipt Date: 20130306
  Transmission Date: 20140127
  Serious: Yes (Hospitalization)
  Sender: FDA-Public Use
  Company Number: FR-ASTELLAS-2013EU000893

PATIENT
  Age: 7 None
  Sex: Female
  Weight: 23 kg

DRUGS (3)
  1. MICAFUNGIN INJECTION [Suspect]
     Indication: PROPHYLAXIS
     Dosage: 25 MG, UNKNOWN/D
     Route: 042
     Dates: start: 20121212, end: 20130113
  2. FORTUM /00559701/ [Concomitant]
     Indication: FEBRILE NEUTROPENIA
     Dosage: 3300 MG, UNKNOWN/D
     Route: 042
     Dates: start: 20130102
  3. ZYVOXID [Concomitant]
     Indication: FEBRILE NEUTROPENIA
     Dosage: 750 MG, UNKNOWN/D
     Route: 042
     Dates: start: 20130102

REACTIONS (2)
  - Drug ineffective [Unknown]
  - Pneumonia fungal [Recovering/Resolving]
